FAERS Safety Report 9799457 (Version 1)
Quarter: 2014Q1

REPORT INFORMATION
  Report Type: Spontaneous
  Country: US (occurrence: None)
  Receive Date: 20140103
  Receipt Date: 20140103
  Transmission Date: 20141002
  Serious: Yes (Other)
  Sender: FDA-Public Use
  Company Number: None

PATIENT
  Age: 63 Year
  Sex: Female

DRUGS (4)
  1. AFINITOR, 10 MG, NOVARTIS [Suspect]
     Indication: BREAST CANCER
     Dates: start: 20131119
  2. TAMOXIFEN [Concomitant]
  3. IBUPROFEN [Concomitant]
  4. EXEMESTANE [Concomitant]

REACTIONS (2)
  - Platelet count decreased [None]
  - Red blood cell count decreased [None]
